FAERS Safety Report 4674586-6 (Version None)
Quarter: 2005Q2

REPORT INFORMATION
  Report Type: 
  Country: None (occurrence: None)
  Receive Date: 20050525
  Receipt Date: 20050524
  Transmission Date: 20051028
  Serious: Yes (Other)
  Sender: FDA-Public Use
  Company Number: 05-05-0932

PATIENT
  Age: 31 Year
  Sex: Female

DRUGS (2)
  1. CLOZAPINE [Suspect]
     Dosage: 600MG QD ORAL
     Route: 048
     Dates: start: 20010501
  2. CHEMOTHERAPY [Suspect]
     Indication: NEOPLASM MALIGNANT

REACTIONS (2)
  - LEUKOPENIA [None]
  - NEOPLASM MALIGNANT [None]
